FAERS Safety Report 23295964 (Version 1)
Quarter: 2023Q4

REPORT INFORMATION
  Report Type: Spontaneous
  Country: US (occurrence: US)
  Receive Date: 20231214
  Receipt Date: 20231214
  Transmission Date: 20240109
  Serious: No
  Sender: FDA-Public Use
  Company Number: US-HALEON-USCH2023061353

PATIENT
  Age: 57 Year
  Sex: Female

DRUGS (2)
  1. CHAPSTICK NOS [Suspect]
     Active Substance: AVOBENZONE\HOMOSALATE\OCTINOXATE\OCTISALATE\OCTOCRYLENE\OXYBENZONE\TITANIUM DIOXIDE\ZINC OXIDE
     Indication: Chapped lips
     Dosage: UNK
     Dates: start: 20200811, end: 20200813
  2. CHAPSTICK CLASSIC ORIGINAL [Suspect]
     Active Substance: PETROLATUM
     Indication: Product used for unknown indication
     Dosage: UNK

REACTIONS (3)
  - Oral pain [Recovered/Resolved]
  - Dry mouth [Recovered/Resolved]
  - Oral mucosal erythema [Recovered/Resolved]

NARRATIVE: CASE EVENT DATE: 20230811
